FAERS Safety Report 7167130-5 (Version None)
Quarter: 2010Q4

REPORT INFORMATION
  Report Type: 
  Country: None (occurrence: None)
  Receive Date: 20101216
  Receipt Date: 20101208
  Transmission Date: 20110411
  Serious: Yes (Hospitalization, Other)
  Sender: FDA-Public Use
  Company Number: US-SANOFI-AVENTIS-2010SA069686

PATIENT
  Age: 77 Year
  Sex: Male
  Weight: 84.5 kg

DRUGS (25)
  1. PLAVIX [Suspect]
     Indication: STENT PLACEMENT
     Route: 048
     Dates: start: 20090506, end: 20100922
  2. PLAVIX [Suspect]
     Dosage: MONDAYS, WEDNESDAYS, FRIDAYS
     Route: 048
     Dates: start: 20100922, end: 20101026
  3. ALLOPURINOL [Concomitant]
  4. MULTI-VITAMINS [Concomitant]
  5. FUROSEMIDE [Concomitant]
  6. SOTALOL [Concomitant]
  7. POTASSIUM CHLORIDE [Concomitant]
     Route: 048
  8. ASPIRIN [Concomitant]
  9. FOLIC ACID [Concomitant]
  10. MAGNESIUM CHLORIDE [Concomitant]
  11. ZANTAC [Concomitant]
  12. UROXATRAL [Concomitant]
  13. GABAPENTIN [Concomitant]
  14. NORVASC [Concomitant]
  15. REQUIP [Concomitant]
  16. ALL OTHER THERAPEUTIC PRODUCTS [Concomitant]
  17. ZOCOR [Concomitant]
  18. SOTALOL [Concomitant]
  19. SENNA [Concomitant]
  20. ALKALOL [Concomitant]
  21. NASAL SALINE [Concomitant]
  22. ALL OTHER THERAPEUTIC PRODUCTS [Concomitant]
  23. TYLENOL (CAPLET) [Concomitant]
  24. HYDROCODONE BITARTRATE AND ACETAMINOPHEN [Concomitant]
  25. LIDODERM [Concomitant]

REACTIONS (5)
  - CAROTID ARTERY OCCLUSION [None]
  - CONTUSION [None]
  - HAEMORRHAGE [None]
  - MYELODYSPLASTIC SYNDROME [None]
  - THROMBOCYTOPENIA [None]
